FAERS Safety Report 5214239-9 (Version None)
Quarter: 2007Q1

REPORT INFORMATION
  Report Type: 
  Country: None (occurrence: None)
  Receive Date: 20070117
  Receipt Date: 20070108
  Transmission Date: 20070707
  Serious: Yes (Other)
  Sender: FDA-Public Use
  Company Number: 07011982

PATIENT
  Age: 2 Year
  Sex: Female

DRUGS (3)
  1. MOMETASONE NOS [Suspect]
     Indication: DERMATITIS ATOPIC
     Dosage: 1 APP, QD, TOPICAL
     Route: 061
  2. BECLOMETASONE DIPROPIONATE (BECLOMETHASONE DIPROPION [Suspect]
     Indication: BRONCHITIS
  3. BETAMETHASONE [Suspect]
     Indication: BRONCHITIS
     Dosage: QD, ORAL
     Route: 048

REACTIONS (4)
  - BONE DISORDER [None]
  - DRUG HYPERSENSITIVITY [None]
  - MYOPATHY [None]
  - OSTEONECROSIS [None]
